FAERS Safety Report 18263583 (Version 1)
Quarter: 2020Q3

REPORT INFORMATION
  Report Type: Spontaneous
  Country: US (occurrence: US)
  Receive Date: 20200911
  Receipt Date: 20200911
  Transmission Date: 20201103
  Serious: No
  Sender: FDA-Public Use
  Company Number: None

PATIENT
  Age: 50 Year

DRUGS (33)
  1. FLUTICASONE. [Concomitant]
     Active Substance: FLUTICASONE
  2. GLUCOTROL [Concomitant]
     Active Substance: GLIPIZIDE
  3. NYSTATIN. [Concomitant]
     Active Substance: NYSTATIN
  4. TACROLIMUS. [Concomitant]
     Active Substance: TACROLIMUS
  5. TRAMADOL HCL [Concomitant]
     Active Substance: TRAMADOL HYDROCHLORIDE
  6. VERDESO [Concomitant]
     Active Substance: DESONIDE
  7. CICLOPIROX CRE [Concomitant]
  8. CIMZIA [Concomitant]
     Active Substance: CERTOLIZUMAB PEGOL
  9. CLONIDINE. [Concomitant]
     Active Substance: CLONIDINE
  10. METFORMIN [Concomitant]
     Active Substance: METFORMIN HYDROCHLORIDE
  11. METHOCARBAM [Concomitant]
     Active Substance: METHOCARBAMOL
  12. HUMIRA [Suspect]
     Active Substance: ADALIMUMAB
     Indication: PSORIASIS
     Route: 058
     Dates: start: 20200610
  13. AZELASTINE. [Concomitant]
     Active Substance: AZELASTINE HYDROCHLORIDE
  14. CEVIMELINE. [Concomitant]
     Active Substance: CEVIMELINE
  15. CITALOPRAM [Concomitant]
     Active Substance: CITALOPRAM HYDROBROMIDE
  16. CLONAZEPAM. [Concomitant]
     Active Substance: CLONAZEPAM
  17. HALOBETASL [Concomitant]
  18. INSULIN ASPA FLEXPEN [Concomitant]
  19. APAP/CODEINE [Concomitant]
     Active Substance: ACETAMINOPHEN\CODEINE PHOSPHATE
  20. LEFLUNOMIDE. [Concomitant]
     Active Substance: LEFLUNOMIDE
  21. OLANZAPINE. [Concomitant]
     Active Substance: OLANZAPINE
  22. CALCIFEROL [Concomitant]
  23. DESONIDE. [Concomitant]
     Active Substance: DESONIDE
  24. DULOXETINE. [Concomitant]
     Active Substance: DULOXETINE
  25. EMSTILAR [Concomitant]
  26. LISINOPRIL. [Concomitant]
     Active Substance: LISINOPRIL
  27. QUETIAPINE. [Concomitant]
     Active Substance: QUETIAPINE
  28. LANTUS SOLOS [Concomitant]
  29. MOMETASONE [Concomitant]
     Active Substance: MOMETASONE
  30. NOVOLOG [Concomitant]
     Active Substance: INSULIN ASPART
  31. TRAZODONE [Concomitant]
     Active Substance: TRAZODONE HYDROCHLORIDE
  32. AMITRIPTLYN [Concomitant]
  33. PREDNISONE. [Concomitant]
     Active Substance: PREDNISONE

REACTIONS (2)
  - Cardiac failure [None]
  - Heart rate decreased [None]

NARRATIVE: CASE EVENT DATE: 20200911
